FAERS Safety Report 20694729 (Version 2)
Quarter: 2025Q1

REPORT INFORMATION
  Report Type: Report from Study
  Country: FR (occurrence: FR)
  Receive Date: 20220411
  Receipt Date: 20250128
  Transmission Date: 20250408
  Serious: Yes (Hospitalization)
  Sender: TAKEDA
  Company Number: FR-TAKEDA-FR202025077

PATIENT
  Sex: Male

DRUGS (19)
  1. VELAGLUCERASE ALFA [Suspect]
     Active Substance: VELAGLUCERASE ALFA
     Indication: Gaucher^s disease
     Dosage: 60 INTERNATIONAL UNIT/KILOGRAM, Q3WEEKS
     Dates: start: 20100518, end: 20110419
  2. VELAGLUCERASE ALFA [Suspect]
     Active Substance: VELAGLUCERASE ALFA
     Dosage: 45 INTERNATIONAL UNIT/KILOGRAM, Q2WEEKS
     Dates: start: 20110419
  3. STALEVO [Concomitant]
     Active Substance: CARBIDOPA\ENTACAPONE\LEVODOPA
     Indication: Parkinson^s disease
     Dosage: UNK UNK, QD
  4. STALEVO [Concomitant]
     Active Substance: CARBIDOPA\ENTACAPONE\LEVODOPA
     Dosage: UNK, TID
  5. BENSERAZIDE HYDROCHLORIDE\LEVODOPA [Concomitant]
     Active Substance: BENSERAZIDE HYDROCHLORIDE\LEVODOPA
     Indication: Parkinson^s disease
     Dosage: UNK UNK, BID
  6. MIANSERIN [Concomitant]
     Active Substance: MIANSERIN
     Indication: Depression
     Dosage: UNK UNK, QD
  7. IMOVANE [Concomitant]
     Active Substance: ZOPICLONE
     Indication: Sleep disorder
     Dosage: UNK UNK, QD
  8. WARFARIN SODIUM [Concomitant]
     Active Substance: WARFARIN SODIUM
     Indication: Pulmonary embolism
     Dosage: 2000 MILLIGRAM, QD
  9. XANAX [Concomitant]
     Active Substance: ALPRAZOLAM
     Indication: Depression
     Dosage: 0.5 MILLIGRAM, TID
  10. RIVASTIGMINE [Concomitant]
     Active Substance: RIVASTIGMINE
     Indication: Parkinson^s disease
     Dosage: UNK UNK, QD
  11. TERALITHE [Concomitant]
     Active Substance: LITHIUM CARBONATE
     Indication: Bipolar disorder
     Dosage: 1000 MILLIGRAM, QD
  12. CEFTRIAXONE SODIUM [Concomitant]
     Active Substance: CEFTRIAXONE SODIUM
     Indication: Osteomyelitis
     Dosage: 2 GRAM, BID
     Dates: start: 20160402, end: 20160407
  13. PIPERACILLIN SODIUM\TAZOBACTAM SODIUM [Concomitant]
     Active Substance: PIPERACILLIN SODIUM\TAZOBACTAM SODIUM
     Indication: Osteomyelitis
     Dosage: 4 GRAM, TID
     Dates: start: 20160414, end: 201605
  14. MEROPENEM [Concomitant]
     Active Substance: MEROPENEM
     Indication: Osteomyelitis
     Dates: start: 20160512, end: 20160525
  15. AMOXICILLIN [Concomitant]
     Active Substance: AMOXICILLIN
     Indication: Osteomyelitis
     Dosage: 12 GRAM, QD
     Dates: start: 201604, end: 20160725
  16. PENICILLIN V [Concomitant]
     Active Substance: PENICILLIN V
     Indication: Splenectomy
     Dosage: 1000000 INTERNATIONAL UNIT, BID
     Dates: start: 20160525
  17. ORGARAN [Concomitant]
     Active Substance: DANAPAROID SODIUM
     Indication: Pelvic venous thrombosis
     Dosage: 200 INTERNATIONAL UNIT, QD
     Dates: start: 20160519
  18. Melatonine arrow [Concomitant]
     Indication: Sleep disorder
  19. ACETAMINOPHEN [Concomitant]
     Active Substance: ACETAMINOPHEN
     Indication: Pain

REACTIONS (1)
  - Lung disorder [Recovered/Resolved]

NARRATIVE: CASE EVENT DATE: 20161113
